FAERS Safety Report 6257805-4 (Version None)
Quarter: 2009Q3

REPORT INFORMATION
  Report Type: 
  Country: None (occurrence: None)
  Receive Date: 20090706
  Receipt Date: 20090622
  Transmission Date: 20100115
  Serious: Yes (Death, Other)
  Sender: FDA-Public Use
  Company Number: SE-GENENTECH-285971

PATIENT

DRUGS (6)
  1. MABTHERA [Suspect]
     Indication: RENAL TRANSPLANT
     Dosage: 375 MG/M2, UNK
     Route: 065
  2. VALGANCICLOVIR HCL [Suspect]
     Indication: RENAL TRANSPLANT
     Route: 065
  3. MYCOPHENOLATE MOFETIL [Suspect]
     Indication: RENAL TRANSPLANT
     Route: 048
  4. TACROLIMUS [Suspect]
     Indication: RENAL TRANSPLANT
     Route: 048
  5. PREDNISOLONE [Suspect]
     Indication: RENAL TRANSPLANT
     Route: 048
  6. VALACYCLOVIR HCL [Suspect]
     Indication: RENAL TRANSPLANT
     Route: 065

REACTIONS (10)
  - CEREBRAL HAEMORRHAGE [None]
  - CLOSTRIDIUM DIFFICILE COLITIS [None]
  - CYTOMEGALOVIRUS INFECTION [None]
  - EPSTEIN-BARR VIRUS INFECTION [None]
  - KIDNEY TRANSPLANT REJECTION [None]
  - NEPHROPATHY [None]
  - POSTOPERATIVE WOUND INFECTION [None]
  - RENAL ARTERY THROMBOSIS [None]
  - RENAL DISORDER [None]
  - SEPSIS [None]
